FAERS Safety Report 8601255 (Version 3)
Quarter: 2022Q2

REPORT INFORMATION
  Report Type: Report from Study
  Country: US (occurrence: None)
  Receive Date: 20120606
  Receipt Date: 20220513
  Transmission Date: 20220720
  Serious: Yes (Hospitalization)
  Sender: FDA-Public Use
  Company Number: US-ROCHE-1074368

PATIENT
  Age: 62 Year
  Sex: Female
  Weight: 72 kg

DRUGS (3)
  1. BEVACIZUMAB [Suspect]
     Active Substance: BEVACIZUMAB
     Indication: Ovarian epithelial cancer
     Dosage: 30-90 MINUTES ON DAY 1 OF CYCLES 2+
     Route: 042
  2. PACLITAXEL [Suspect]
     Active Substance: PACLITAXEL
     Indication: Ovarian epithelial cancer
     Route: 042
     Dates: start: 20110614
  3. CARBOPLATIN [Suspect]
     Active Substance: CARBOPLATIN
     Indication: Ovarian epithelial cancer
     Dosage: 6 AUC ON DAY 1 (CYCLES 1-6).
     Route: 042
     Dates: start: 20110614

REACTIONS (4)
  - Abdominal pain [Recovered/Resolved with Sequelae]
  - Abdominal distension [Recovered/Resolved with Sequelae]
  - Nausea [Recovered/Resolved with Sequelae]
  - Obstruction gastric [Recovered/Resolved with Sequelae]

NARRATIVE: CASE EVENT DATE: 20120427
